FAERS Safety Report 16768002 (Version 1)
Quarter: 2019Q3

REPORT INFORMATION
  Report Type: Report from Study
  Country: US (occurrence: US)
  Receive Date: 20190903
  Receipt Date: 20190903
  Transmission Date: 20191005
  Serious: Yes (Other)
  Sender: FDA-Public Use
  Company Number: US-BRECKENRIDGE PHARMACEUTICAL, INC.-2073952

PATIENT
  Age: 43 Year
  Sex: Female
  Weight: 117.73 kg

DRUGS (6)
  1. IRON [Concomitant]
     Active Substance: IRON
     Route: 048
  2. DOCUSATE SODIUM. [Concomitant]
     Active Substance: DOCUSATE SODIUM
     Route: 048
  3. IBUPROFEN. [Concomitant]
     Active Substance: IBUPROFEN
     Route: 048
  4. VITAMIN D [Concomitant]
     Active Substance: VITAMIN D NOS
     Route: 048
  5. ESTRADIOL - NORETHINDRONE ACETATE [Suspect]
     Active Substance: ESTRADIOL\NORETHINDRONE ACETATE
     Route: 048
  6. ELAGOLIX [Suspect]
     Active Substance: ELAGOLIX
     Route: 048

REACTIONS (2)
  - Uterine leiomyoma [Recovered/Resolved]
  - Prolapse [None]
